FAERS Safety Report 26144537 (Version 1)
Quarter: 2025Q4

REPORT INFORMATION
  Report Type: Spontaneous
  Country: JP (occurrence: JP)
  Receive Date: 20251211
  Receipt Date: 20251211
  Transmission Date: 20260119
  Serious: Yes (Life-Threatening, Hospitalization, Other)
  Sender: BRISTOL-MYERS SQUIBB COMPANY
  Company Number: JP-ONO-2025JP009988

PATIENT
  Age: 69 Year
  Sex: Male
  Weight: 49.3 kg

DRUGS (1)
  1. OPDIVO [Suspect]
     Active Substance: NIVOLUMAB
     Indication: Transitional cell carcinoma
     Route: 041
     Dates: start: 20250513, end: 20250513

REACTIONS (1)
  - Myasthenia gravis [Unknown]

NARRATIVE: CASE EVENT DATE: 20250527
